FAERS Safety Report 7414664-1 (Version None)
Quarter: 2011Q2

REPORT INFORMATION
  Report Type: 
  Country: None (occurrence: None)
  Receive Date: 20110406
  Receipt Date: 20110330
  Transmission Date: 20111010
  Serious: Yes (Life-Threatening)
  Sender: FDA-Public Use
  Company Number: 019657

PATIENT
  Sex: Female
  Weight: 58.1 kg

DRUGS (5)
  1. CERTOLIZUMAB PEGOL [Suspect]
     Indication: RHEUMATOID ARTHRITIS
     Dosage: SEE IMAGE
     Route: 058
     Dates: start: 20100204, end: 20100830
  2. METHOTREXATE [Concomitant]
  3. LIPITOR [Concomitant]
  4. FOLIC ACID [Concomitant]
  5. PYRIDOXINE [Concomitant]

REACTIONS (47)
  - HEADACHE [None]
  - HILAR LYMPHADENOPATHY [None]
  - CONDITION AGGRAVATED [None]
  - HAEMOGLOBIN DECREASED [None]
  - HAEMANGIOMA OF LIVER [None]
  - PULMONARY SARCOIDOSIS [None]
  - PLATELET COUNT INCREASED [None]
  - SEPSIS [None]
  - MUSCULOSKELETAL STIFFNESS [None]
  - PYREXIA [None]
  - DECREASED APPETITE [None]
  - HEART RATE INCREASED [None]
  - BREATH SOUNDS ABNORMAL [None]
  - ANTINUCLEAR ANTIBODY POSITIVE [None]
  - MYCOBACTERIUM TEST POSITIVE [None]
  - PULMONARY NECROSIS [None]
  - CHILLS [None]
  - ABDOMINAL PAIN UPPER [None]
  - HEPATIC LESION [None]
  - HYPOTENSION [None]
  - ARTHRALGIA [None]
  - CARDIOMEGALY [None]
  - TUBERCULIN TEST POSITIVE [None]
  - NIGHT SWEATS [None]
  - NAUSEA [None]
  - APHTHOUS STOMATITIS [None]
  - RHEUMATOID ARTHRITIS [None]
  - ANTI-CYCLIC CITRULLINATED PEPTIDE ANTIBODY POSITIVE [None]
  - PULMONARY GRANULOMA [None]
  - PULMONARY MASS [None]
  - LUNG NEOPLASM [None]
  - FEMUR FRACTURE [None]
  - BLOOD ALKALINE PHOSPHATASE INCREASED [None]
  - BRONCHIAL OEDEMA [None]
  - WEGENER'S GRANULOMATOSIS [None]
  - PNEUMONIA [None]
  - WEIGHT DECREASED [None]
  - BLOOD SODIUM DECREASED [None]
  - GROIN PAIN [None]
  - HEPATIC NEOPLASM [None]
  - RHEUMATOID NODULE [None]
  - PULMONARY TUBERCULOSIS [None]
  - CHEST X-RAY ABNORMAL [None]
  - RESPIRATORY RATE INCREASED [None]
  - RALES [None]
  - PNEUMOTHORAX [None]
  - LUNG INFILTRATION [None]
